FAERS Safety Report 8140075-X (Version None)
Quarter: 2012Q1

REPORT INFORMATION
  Report Type: 
  Country: None (occurrence: None)
  Receive Date: 20120215
  Receipt Date: 20120202
  Transmission Date: 20120608
  Serious: Yes (Other)
  Sender: FDA-Public Use
  Company Number: FR-MYLANLABS-2012S1002707

PATIENT
  Age: 90 Year

DRUGS (2)
  1. FOLIC ACID [Concomitant]
     Route: 065
  2. METHOTREXATE [Suspect]
     Indication: PEMPHIGOID
     Dosage: LOW-DOSE
     Route: 065

REACTIONS (1)
  - ASTHENIA [None]
